FAERS Safety Report 7722734-3 (Version None)
Quarter: 2011Q3

REPORT INFORMATION
  Report Type: 
  Country: None (occurrence: None)
  Receive Date: 20110831
  Receipt Date: 20110818
  Transmission Date: 20111222
  Serious: No
  Sender: FDA-Public Use
  Company Number: US-B.I. PHARMACEUTICALS,INC./RIDGEFIELD-2011-BP-20321BP

PATIENT
  Sex: Female

DRUGS (9)
  1. DIGOXIN [Concomitant]
     Indication: ATRIAL FIBRILLATION
     Route: 048
  2. ACTENOL [Concomitant]
     Route: 048
  3. PRADAXA [Suspect]
     Indication: ATRIAL FIBRILLATION
     Dosage: 75 MG
     Route: 048
     Dates: start: 20110816, end: 20110817
  4. LISINOPRIL [Concomitant]
     Indication: HYPERTENSION
     Route: 048
  5. DIOVAN [Concomitant]
     Indication: HYPERTENSION
     Route: 048
  6. EPITOL [Concomitant]
     Indication: CONVULSION
     Route: 048
  7. LASIX [Concomitant]
     Route: 048
  8. REMERON [Concomitant]
     Indication: DEPRESSION
     Route: 048
  9. OMEPRAZOLE [Concomitant]
     Indication: GASTROOESOPHAGEAL REFLUX DISEASE
     Route: 048

REACTIONS (5)
  - BALANCE DISORDER [None]
  - CONFUSIONAL STATE [None]
  - EYE DISORDER [None]
  - ARTHRALGIA [None]
  - ABDOMINAL DISCOMFORT [None]
